FAERS Safety Report 4908777-3 (Version None)
Quarter: 2006Q1

REPORT INFORMATION
  Report Type: 
  Country: None (occurrence: None)
  Receive Date: 20060210
  Receipt Date: 20051117
  Transmission Date: 20060701
  Serious: No
  Sender: FDA-Public Use
  Company Number: US-GLAXOSMITHKLINE-A0582738A

PATIENT
  Age: 75 Year
  Sex: Female

DRUGS (9)
  1. PAXIL CR [Suspect]
     Indication: DEPRESSION
     Dosage: 12.5MG PER DAY
     Route: 048
     Dates: start: 20051116
  2. SYNTHROID [Concomitant]
  3. PRILOSEC [Concomitant]
  4. ZOCOR [Concomitant]
  5. MIACALCIN [Concomitant]
  6. NEURONTIN [Concomitant]
  7. CARAFATE [Concomitant]
  8. KLONOPIN [Concomitant]
  9. DULCOLAX [Concomitant]

REACTIONS (1)
  - DIARRHOEA [None]
